FAERS Safety Report 12194036 (Version 1)
Quarter: 2016Q1

REPORT INFORMATION
  Report Type: Spontaneous
  Country: US (occurrence: None)
  Receive Date: 20160318
  Receipt Date: 20160318
  Transmission Date: 20160526
  Serious: Yes (Death)
  Sender: FDA-Public Use
  Company Number: None

PATIENT
  Age: 71 Year
  Sex: Female

DRUGS (1)
  1. ORENCIA [Suspect]
     Active Substance: ABATACEPT
     Indication: RHEUMATOID ARTHRITIS
     Dosage: 1000 MG  Q4WEEKS, IV?14-MACH-2015 LAST FILL AT WSP
     Route: 042
     Dates: start: 20150314

REACTIONS (1)
  - Death [None]

NARRATIVE: CASE EVENT DATE: 20160311
